FAERS Safety Report 23831922 (Version 1)
Quarter: 2024Q2

REPORT INFORMATION
  Report Type: Spontaneous
  Country: US (occurrence: US)
  Receive Date: 20240508
  Receipt Date: 20240508
  Transmission Date: 20240716
  Serious: No
  Sender: FDA-Public Use
  Company Number: US-TEVA-VS-3187525

PATIENT

DRUGS (1)
  1. AUSTEDO [Suspect]
     Active Substance: DEUTETRABENAZINE
     Dosage: 3 TABLETS OF THE AUSTEDO 12 MG EVERY MORNING AND 2 TABLETS EVERY EVENING
     Route: 065

REACTIONS (1)
  - Overdose [Unknown]
